FAERS Safety Report 20022167 (Version 1)
Quarter: 2021Q4

REPORT INFORMATION
  Report Type: Spontaneous
  Country: US (occurrence: US)
  Receive Date: 20211102
  Receipt Date: 20211102
  Transmission Date: 20220303
  Serious: No
  Sender: FDA-Public Use
  Company Number: US-GLAXOSMITHKLINE-USCH2021076114

PATIENT
  Age: 36 Year
  Sex: Male

DRUGS (2)
  1. NICODERM CQ [Suspect]
     Active Substance: NICOTINE
     Indication: Drug withdrawal maintenance therapy
     Dosage: UNK
     Dates: start: 20211027, end: 20211027
  2. NICORETTE [Suspect]
     Active Substance: NICOTINE
     Indication: Drug withdrawal maintenance therapy
     Dosage: UNK
     Dates: start: 20211024, end: 20211027

REACTIONS (2)
  - Pruritus [Recovering/Resolving]
  - Throat irritation [Recovered/Resolved]

NARRATIVE: CASE EVENT DATE: 20211024
